FAERS Safety Report 6781844-8 (Version None)
Quarter: 2010Q2

REPORT INFORMATION
  Report Type: 
  Country: None (occurrence: None)
  Receive Date: 20100621
  Receipt Date: 20100609
  Transmission Date: 20101027
  Serious: Yes (Other)
  Sender: FDA-Public Use
  Company Number: PHHY2010US23583

PATIENT
  Sex: Female

DRUGS (6)
  1. EXTAVIA [Suspect]
     Indication: MULTIPLE SCLEROSIS
     Dosage: 0.062 MG, QOD
     Route: 058
     Dates: start: 20100331
  2. AMBIEN [Concomitant]
     Dosage: 5 MG, QHS/PRN
  3. PREMPRO [Concomitant]
     Dosage: 0.3/ 1.5 MG CREAM QOD
  4. MULTI-VITAMINS [Concomitant]
     Dosage: 1 DF, QD
  5. FISH OIL [Concomitant]
     Dosage: 1 DF, QD
  6. VITAMIN D [Concomitant]
     Dosage: UNK

REACTIONS (6)
  - FALL [None]
  - INJECTION SITE ERYTHEMA [None]
  - INJECTION SITE HAEMATOMA [None]
  - INJECTION SITE NODULE [None]
  - INJECTION SITE PAIN [None]
  - MUSCULAR WEAKNESS [None]
